FAERS Safety Report 6445607-5 (Version None)
Quarter: 2009Q4

REPORT INFORMATION
  Report Type: 
  Country: None (occurrence: None)
  Receive Date: 20091118
  Receipt Date: 20091118
  Transmission Date: 20100525
  Serious: Yes (Life-Threatening, Hospitalization, Disabling, Other)
  Sender: FDA-Public Use
  Company Number: None

PATIENT
  Sex: Female
  Weight: 58.9676 kg

DRUGS (1)
  1. PREDNISONE [Suspect]
     Indication: CARPAL TUNNEL SYNDROME
     Dosage: 5 MG DAILY

REACTIONS (3)
  - ASTHENIA [None]
  - HEART RATE DECREASED [None]
  - WEIGHT INCREASED [None]
